FAERS Safety Report 23829403 (Version 2)
Quarter: 2025Q2

REPORT INFORMATION
  Report Type: Spontaneous
  Country: IT (occurrence: IT)
  Receive Date: 20240508
  Receipt Date: 20250402
  Transmission Date: 20250717
  Serious: Yes (Hospitalization, Other)
  Sender: AMGEN
  Company Number: IT-AMGEN-ITASP2024086152

PATIENT
  Sex: Male

DRUGS (3)
  1. VECTIBIX [Suspect]
     Active Substance: PANITUMUMAB
     Indication: Colorectal cancer
     Route: 065
  2. OXALIPLATIN [Concomitant]
     Active Substance: OXALIPLATIN
  3. FLUOROURACIL [Suspect]
     Active Substance: FLUOROURACIL
     Indication: Product used for unknown indication
     Route: 065

REACTIONS (5)
  - Interstitial lung disease [Unknown]
  - Eyelash changes [Unknown]
  - Hypertrichosis [Unknown]
  - Skin exfoliation [Unknown]
  - Rash [Unknown]

NARRATIVE: CASE EVENT DATE: 20240401
